FAERS Safety Report 8767296 (Version 3)
Quarter: 2012Q4

REPORT INFORMATION
  Report Type: 
  Country: JP (occurrence: JP)
  Receive Date: 20120904
  Receipt Date: 20121203
  Transmission Date: 20130627
  Serious: Yes (Other)
  Sender: FDA-Public Use
  Company Number: PHHY2012JP075964

PATIENT

DRUGS (4)
  1. NEORAL [Suspect]
     Indication: INTERSTITIAL LUNG DISEASE
     Dosage: 200 mg, QD
     Route: 048
  2. SANDIMMUN [Suspect]
     Indication: INTERSTITIAL LUNG DISEASE
     Dosage: 100 mg, QD
     Route: 041
  3. PREDNISOLONE [Concomitant]
     Dosage: 80 mg, UNK
     Route: 048
  4. METHOTREXATE [Concomitant]
     Route: 048

REACTIONS (3)
  - Interstitial lung disease [Unknown]
  - Dysphagia [Recovered/Resolved]
  - Malabsorption [Recovered/Resolved]
